FAERS Safety Report 8321422-2 (Version None)
Quarter: 2012Q2

REPORT INFORMATION
  Report Type: 
  Country: None (occurrence: None)
  Receive Date: 20120430
  Receipt Date: 20120420
  Transmission Date: 20120825
  Serious: Yes (Other)
  Sender: FDA-Public Use
  Company Number: US-ASTRAZENECA-2012SE26101

PATIENT
  Sex: Female

DRUGS (3)
  1. ZOLOFT [Suspect]
     Route: 048
  2. SEROQUEL XR [Suspect]
     Indication: SCHIZOPHRENIA
     Route: 048
  3. GEODON [Suspect]
     Route: 048

REACTIONS (1)
  - SEROTONIN SYNDROME [None]
